FAERS Safety Report 8608347-X (Version None)
Quarter: 2012Q3

REPORT INFORMATION
  Report Type: 
  Country: None (occurrence: None)
  Receive Date: 20120821
  Receipt Date: 20120815
  Transmission Date: 20120928
  Serious: Yes (Death, Other)
  Sender: FDA-Public Use
  Company Number: US-BAYER-2012-058680

PATIENT
  Age: 78 Year
  Sex: Male
  Weight: 66 kg

DRUGS (17)
  1. XANAX [Concomitant]
  2. MIDAZOLAM [Concomitant]
     Dosage: UNK
     Dates: start: 20061213, end: 20061213
  3. TRASYLOL [Suspect]
     Indication: COX-MAZE PROCEDURE
     Dosage: 25CC/HR INFUSION
     Route: 042
     Dates: start: 20061213, end: 20061213
  4. INSULIN [Concomitant]
     Dosage: UNK
     Dates: start: 20061213
  5. PRECEDEX [Concomitant]
  6. METOPROLOL TARTRATE [Concomitant]
  7. TRASYLOL [Suspect]
     Indication: MITRAL VALVE REPLACEMENT
     Dosage: 1 ML TEST DOSE
     Route: 042
     Dates: start: 20061213, end: 20061213
  8. TRASYLOL [Suspect]
     Indication: CORONARY ARTERY BYPASS
     Dosage: 100 ML PUMP PRIME
     Route: 042
     Dates: start: 20061213, end: 20061213
  9. VECURONIUM BROMIDE [Concomitant]
     Dosage: UNK
     Dates: start: 20061213, end: 20061213
  10. LASIX [Concomitant]
  11. COUMADIN [Concomitant]
  12. AMIDOX [Concomitant]
     Dosage: UNK
     Dates: start: 20061213, end: 20061213
  13. ANCEF [Concomitant]
     Dosage: UNK
     Dates: start: 20061213, end: 20061213
  14. AMICAR [Concomitant]
     Dosage: 10 G, UNK
     Route: 042
     Dates: start: 20070502
  15. NORVASC [Concomitant]
  16. DIGOXIN [Concomitant]
  17. HEPARIN [Concomitant]
     Dosage: UNK
     Dates: start: 20061213, end: 20061213

REACTIONS (7)
  - URINE OUTPUT DECREASED [None]
  - CARDIAC ARREST [None]
  - ATRIAL FIBRILLATION [None]
  - STATUS EPILEPTICUS [None]
  - PLEURAL EFFUSION [None]
  - BLOOD UREA INCREASED [None]
  - BLOOD CREATININE INCREASED [None]
